FAERS Safety Report 6874718-5 (Version None)
Quarter: 2010Q3

REPORT INFORMATION
  Report Type: 
  Country: None (occurrence: None)
  Receive Date: 20100723
  Receipt Date: 20100714
  Transmission Date: 20110219
  Serious: Yes (Other)
  Sender: FDA-Public Use
  Company Number: 642105

PATIENT
  Sex: Male

DRUGS (2)
  1. NOVOCAIN [Suspect]
     Indication: DENTAL CARE
     Dates: start: 20100625
  2. VIAGRA [Suspect]
     Indication: PRODUCT USED FOR UNKNOWN INDICATION
     Dosage: HALF TABLET

REACTIONS (3)
  - DRUG INTERACTION [None]
  - VISION BLURRED [None]
  - WRONG TECHNIQUE IN DRUG USAGE PROCESS [None]
